FAERS Safety Report 22298125 (Version 1)
Quarter: 2023Q2

REPORT INFORMATION
  Report Type: Spontaneous
  Country: IT (occurrence: IT)
  Receive Date: 20230509
  Receipt Date: 20230509
  Transmission Date: 20230721
  Serious: Yes (Other)
  Sender: FDA-Public Use
  Company Number: None

PATIENT
  Age: 71 Year
  Sex: Female

DRUGS (5)
  1. ERBITUX [Suspect]
     Active Substance: CETUXIMAB
     Indication: Colon cancer
     Dosage: 730 MG, UNK
     Route: 042
     Dates: start: 20230209, end: 20230209
  2. FLUOROURACIL [Suspect]
     Active Substance: FLUOROURACIL
     Indication: Colon cancer
     Dosage: 3504 MG, UNK
     Route: 042
     Dates: start: 20230209, end: 20230209
  3. FLUOROURACIL [Suspect]
     Active Substance: FLUOROURACIL
     Dosage: 584 MG, UNKNOWN
     Route: 042
     Dates: start: 20230209, end: 20230209
  4. OXALIPLATIN [Suspect]
     Active Substance: OXALIPLATIN
     Indication: Colon cancer
     Dosage: 124.1 MG, UNKNOWN
     Route: 042
     Dates: start: 20230209, end: 20230209
  5. LEVOLEUCOVORIN DISODIUM [Concomitant]
     Active Substance: LEVOLEUCOVORIN DISODIUM
     Indication: Colon cancer
     Dosage: 292 MG, UNK

REACTIONS (1)
  - Neutropenia [Recovering/Resolving]

NARRATIVE: CASE EVENT DATE: 20230313
